FAERS Safety Report 24547722 (Version 2)
Quarter: 2025Q1

REPORT INFORMATION
  Report Type: Spontaneous
  Country: AU (occurrence: AU)
  Receive Date: 20241025
  Receipt Date: 20250123
  Transmission Date: 20250409
  Serious: No
  Sender: REGENERON
  Company Number: AU-BAYER-2024A150367

PATIENT
  Sex: Female

DRUGS (2)
  1. EYLEA [Suspect]
     Active Substance: AFLIBERCEPT
     Indication: Cystoid macular oedema
  2. PREDNEFRIN FORTE [PHENYLEPHRINE HYDROCHLORIDE;PREDNISOLONE ACETATE] [Concomitant]
     Indication: Product used for unknown indication
     Dates: start: 20241018

REACTIONS (1)
  - Product use in unapproved indication [Unknown]
